FAERS Safety Report 24250575 (Version 3)
Quarter: 2024Q4

REPORT INFORMATION
  Report Type: Spontaneous
  Country: US (occurrence: US)
  Receive Date: 20240826
  Receipt Date: 20241114
  Transmission Date: 20250114
  Serious: Yes (Other)
  Sender: CALLIDITAS THERAPEUTICS AB
  Company Number: US-Calliditas-2024CAL01357

PATIENT
  Age: 59 Year
  Sex: Male
  Weight: 177.3 kg

DRUGS (2)
  1. TARPEYO [Suspect]
     Active Substance: BUDESONIDE
     Indication: IgA nephropathy
     Route: 048
     Dates: start: 20240711
  2. PREDNISONE [Concomitant]
     Active Substance: PREDNISONE

REACTIONS (7)
  - Somnolence [Not Recovered/Not Resolved]
  - Acne [Not Recovered/Not Resolved]
  - Peripheral swelling [Not Recovered/Not Resolved]
  - Joint swelling [Not Recovered/Not Resolved]
  - Inappropriate schedule of product administration [Unknown]
  - Diabetes mellitus [Unknown]
  - Vision blurred [Recovered/Resolved]

NARRATIVE: CASE EVENT DATE: 20240801
